FAERS Safety Report 10173158 (Version 1)
Quarter: 2014Q2

REPORT INFORMATION
  Report Type: Spontaneous
  Country: CH (occurrence: CH)
  Receive Date: 20140515
  Receipt Date: 20140515
  Transmission Date: 20141212
  Serious: Yes (Other)
  Sender: FDA-Public Use
  Company Number: CH-ASTRAZENECA-2014SE31292

PATIENT
  Age: 7 Year
  Sex: Male

DRUGS (6)
  1. MERONEM [Suspect]
     Route: 042
     Dates: start: 20140331, end: 20140403
  2. PERFALGAN [Suspect]
     Route: 041
     Dates: start: 20140330, end: 20140404
  3. PERFALGAN [Suspect]
     Route: 041
     Dates: start: 20140412
  4. TEICOPLANIN [Suspect]
     Route: 040
     Dates: start: 20140330, end: 20140402
  5. VFEND [Suspect]
     Dates: start: 20140331, end: 20140403
  6. BACTRIM [Concomitant]
     Dates: start: 20140329

REACTIONS (1)
  - Hepatitis [Recovering/Resolving]
